FAERS Safety Report 9547021 (Version 1)
Quarter: 2013Q2

REPORT INFORMATION
  Report Type: Spontaneous
  Country: US (occurrence: None)
  Receive Date: 20130606
  Receipt Date: 20130606
  Transmission Date: 20140414
  Serious: No
  Sender: FDA-Public Use
  Company Number: 163-POMAL-13051036

PATIENT
  Age: 65 Year
  Sex: Female

DRUGS (1)
  1. POMALYST (POMALIDOMIDE) (4 MILLIGRAM CAPSULES) [Suspect]
     Indication: PLASMA CELL MYELOMA
     Dosage: 4MG, 21 IN 21D, PO
     Route: 048
     Dates: start: 20130412

REACTIONS (3)
  - Ocular hyperaemia [None]
  - Muscle spasms [None]
  - Rash erythematous [None]
